FAERS Safety Report 7559249-1 (Version None)
Quarter: 2011Q2

REPORT INFORMATION
  Report Type: 
  Country: None (occurrence: None)
  Receive Date: 20110613
  Receipt Date: 20110531
  Transmission Date: 20111010
  Serious: Yes (Other)
  Sender: FDA-Public Use
  Company Number: US-001776

PATIENT
  Sex: Female
  Weight: 58.0604 kg

DRUGS (3)
  1. OXYCONTIN [Concomitant]
  2. NAGLAZYME [Suspect]
     Indication: MUCOPOLYSACCHARIDOSIS VI
     Dosage: 65 MG 1X/WEEK INTRAVENOUS DRIP
     Route: 041
     Dates: start: 20071002
  3. OXYCODONE HCL [Concomitant]

REACTIONS (5)
  - BLOOD URINE PRESENT [None]
  - LIVER DISORDER [None]
  - HEPATIC HAEMATOMA [None]
  - PAIN [None]
  - DISCOMFORT [None]
